FAERS Safety Report 6092324-X (Version None)
Quarter: 2009Q1

REPORT INFORMATION
  Report Type: 
  Country: None (occurrence: None)
  Receive Date: 20090225
  Receipt Date: 20090223
  Transmission Date: 20090719
  Serious: Yes (Death, Hospitalization, Other)
  Sender: FDA-Public Use
  Company Number: DE-ABBOTT-09P-062-0558672-00

PATIENT
  Sex: Male
  Weight: 81 kg

DRUGS (3)
  1. KALETRA [Suspect]
     Indication: HIV INFECTION
     Dosage: 800MG, DAILY
     Dates: start: 20070131
  2. TRUVADA [Concomitant]
     Indication: HIV INFECTION
     Dates: start: 20070131
  3. MODURETIC 5-50 [Concomitant]
     Indication: DRUG USE FOR UNKNOWN INDICATION

REACTIONS (4)
  - HEPATIC FAILURE [None]
  - HEPATOTOXICITY [None]
  - KAPOSI'S SARCOMA [None]
  - MULTI-ORGAN FAILURE [None]
